FAERS Safety Report 8267466-0 (Version None)
Quarter: 2012Q2

REPORT INFORMATION
  Report Type: 
  Country: None (occurrence: None)
  Receive Date: 20120409
  Receipt Date: 20120403
  Transmission Date: 20120825
  Serious: Yes (Other)
  Sender: FDA-Public Use
  Company Number: PHHY2012SE027424

PATIENT
  Sex: Female

DRUGS (4)
  1. MORPHINE [Concomitant]
     Dosage: UNK
  2. VOLTAREN [Suspect]
     Indication: PAIN
     Dosage: UNK
     Route: 054
     Dates: start: 20110101
  3. VOLTAREN [Suspect]
     Dosage: 1 DF, TID
     Dates: start: 20120307, end: 20120312
  4. ALVEDON [Concomitant]
     Dosage: 1250 MG (2 X 625MG), TID

REACTIONS (2)
  - BILE DUCT OBSTRUCTION [None]
  - DUODENAL ULCER [None]
